FAERS Safety Report 5795238-5 (Version None)
Quarter: 2008Q2

REPORT INFORMATION
  Report Type: 
  Country: None (occurrence: None)
  Receive Date: 20080625
  Receipt Date: 20080617
  Transmission Date: 20081010
  Serious: Yes (Death, Hospitalization)
  Sender: FDA-Public Use
  Company Number: 2006JP002912

PATIENT
  Age: 64 Year
  Sex: Female
  Weight: 37 kg

DRUGS (20)
  1. TACROLIMUS [Suspect]
     Indication: RHEUMATOID ARTHRITIS
     Dosage: 1.5 MG, UNKNOWN/D, ORAL : 2 MG, UNKNOWN/D, ORAL
     Route: 048
     Dates: start: 20060315, end: 20060711
  2. TACROLIMUS [Suspect]
     Indication: RHEUMATOID ARTHRITIS
     Dosage: 1.5 MG, UNKNOWN/D, ORAL : 2 MG, UNKNOWN/D, ORAL
     Route: 048
     Dates: start: 20060712, end: 20060719
  3. PREDNISOLONE [Suspect]
     Indication: RHEUMATOID ARTHRITIS
     Dosage: 20 MG : 5 MG, UNKNOWN/D, ORAL
     Route: 048
     Dates: start: 20030101, end: 20050101
  4. PREDNISOLONE [Suspect]
     Indication: RHEUMATOID ARTHRITIS
     Dosage: 20 MG : 5 MG, UNKNOWN/D, ORAL
     Route: 048
     Dates: start: 20060512
  5. AZULFIDINE [Suspect]
     Indication: RHEUMATOID ARTHRITIS
     Dosage: 1000 MG, UNKNOWN/D, ORAL
     Route: 048
     Dates: start: 20060512
  6. MOBIC [Suspect]
     Indication: RHEUMATOID ARTHRITIS
     Dosage: 10 MG, UNKNOWN/D,  ORAL
     Route: 048
     Dates: start: 20060512
  7. VOLTAREN [Suspect]
     Indication: RHEUMATOID ARTHRITIS
     Dosage: 25 MG, UNKNOWN/D, RECTAL
     Route: 054
     Dates: start: 20060512, end: 20060719
  8. ALFAROL (ALFACALCIDOL) [Concomitant]
  9. WARFARIN SODIUM [Concomitant]
  10. KENACORT-A INJECTION [Concomitant]
  11. BONALON (ALENDRONIC ACID) [Concomitant]
  12. SYMMETREL [Concomitant]
  13. ALOSENN (TARAXACUM OFFICINALE, ACHILLEA MILLEFOLIUM, SENNA ALEXANDRINA [Concomitant]
  14. GASTER D ORODISPERSIBLE CR TABLET [Concomitant]
  15. THEO-DUR [Concomitant]
  16. SINGULAIR [Concomitant]
  17. HORIZON (DIAZEPAM) [Concomitant]
  18. FLUTIDE (FLUTICASONE PROPIONATE) INHALATION [Concomitant]
  19. LUPRAC (TORASEMIDE) TABLET [Concomitant]
  20. DIGOXIN (BETA-ACETYLDIGOXIN) [Concomitant]

REACTIONS (8)
  - ATRIAL THROMBOSIS [None]
  - DYSPNOEA [None]
  - EOSINOPHIL COUNT INCREASED [None]
  - HAEMORRHAGIC CEREBRAL INFARCTION [None]
  - LOSS OF CONSCIOUSNESS [None]
  - PNEUMONIA BACTERIAL [None]
  - PYREXIA [None]
  - STRESS ULCER [None]
